FAERS Safety Report 26148914 (Version 2)
Quarter: 2025Q4

REPORT INFORMATION
  Report Type: Spontaneous
  Country: EU (occurrence: EU)
  Receive Date: 20251212
  Receipt Date: 20251218
  Transmission Date: 20260117
  Serious: Yes (Other)
  Sender: Kenvue
  Company Number: EU-ELI_LILLY_AND_COMPANY-ES202505022349

PATIENT
  Age: 57 Year
  Weight: 45 kg

DRUGS (5)
  1. LOPERAMIDE HYDROCHLORIDE [Suspect]
     Active Substance: LOPERAMIDE HYDROCHLORIDE
     Indication: Diarrhoea
     Dosage: UNK, UNKNOWN
     Route: 065
  2. ABEMACICLIB [Suspect]
     Active Substance: ABEMACICLIB
     Indication: Breast cancer metastatic
     Dosage: 150 MG, UNKNOWN
     Route: 061
  3. ABEMACICLIB [Suspect]
     Active Substance: ABEMACICLIB
     Dosage: 100 MG, BID
     Route: 061
  4. ABEMACICLIB [Suspect]
     Active Substance: ABEMACICLIB
     Dosage: 100 MG, BID
     Route: 061
  5. LETROZOLE [Suspect]
     Active Substance: LETROZOLE
     Indication: Breast cancer metastatic
     Dosage: UNK, UNKNOWN
     Route: 065

REACTIONS (18)
  - Haematochezia [Recovering/Resolving]
  - Toxicity to various agents [Recovering/Resolving]
  - Weight decreased [Recovering/Resolving]
  - Nervousness [Recovering/Resolving]
  - Hunger [Recovering/Resolving]
  - Abdominal pain [Recovering/Resolving]
  - Affective disorder [Recovering/Resolving]
  - Anxiety [Recovering/Resolving]
  - Constipation [Recovered/Resolved]
  - Dysbiosis [Recovering/Resolving]
  - Bowel movement irregularity [Recovering/Resolving]
  - Bone disorder [Recovering/Resolving]
  - Renal disorder [Recovering/Resolving]
  - Dehydration [Recovering/Resolving]
  - Mucous stools [Recovering/Resolving]
  - Abdominal discomfort [Recovering/Resolving]
  - Back pain [Recovering/Resolving]
  - Diarrhoea [Recovering/Resolving]
